FAERS Safety Report 15308801 (Version 1)
Quarter: 2018Q3

REPORT INFORMATION
  Report Type: Report from Study
  Country: ES (occurrence: ES)
  Receive Date: 20180822
  Receipt Date: 20180822
  Transmission Date: 20181010
  Serious: Yes (Hospitalization)
  Sender: FDA-Public Use
  Company Number: ES-SA-2018SA216624

PATIENT
  Age: 53 Year
  Sex: Female
  Weight: 40 kg

DRUGS (8)
  1. FOLIC ACID. [Suspect]
     Active Substance: FOLIC ACID
     Indication: ADENOCARCINOMA OF COLON
     Dosage: UNK UNK, QOW
     Route: 042
     Dates: start: 20180702, end: 20180702
  2. FOLIC ACID. [Suspect]
     Active Substance: FOLIC ACID
     Dosage: UNK, QOW
     Route: 042
     Dates: start: 20171011, end: 20171011
  3. AFLIBERCEPT [Suspect]
     Active Substance: AFLIBERCEPT
     Indication: ADENOCARCINOMA OF COLON
     Dosage: 152 MG, QOW
     Route: 042
     Dates: start: 20180702, end: 20180702
  4. FLUOROURACIL. [Suspect]
     Active Substance: FLUOROURACIL
     Dosage: 2028 MG, QOW
     Route: 042
     Dates: start: 20171011, end: 20171011
  5. IRINOTECAN [Suspect]
     Active Substance: IRINOTECAN
     Dosage: 163 MG, QOW
     Route: 042
     Dates: start: 20171011, end: 20171011
  6. IRINOTECAN [Suspect]
     Active Substance: IRINOTECAN
     Indication: ADENOCARCINOMA OF COLON
     Dosage: 163 MG, QOW
     Route: 042
     Dates: start: 20180702, end: 20180702
  7. AFLIBERCEPT [Suspect]
     Active Substance: AFLIBERCEPT
     Dosage: 152 MG, QOW
     Route: 042
     Dates: start: 20171011, end: 20171011
  8. FLUOROURACIL. [Suspect]
     Active Substance: FLUOROURACIL
     Indication: ADENOCARCINOMA OF COLON
     Dosage: 2028 MG, QOW
     Route: 042
     Dates: start: 20180702, end: 20180702

REACTIONS (1)
  - Subcutaneous abscess [Recovered/Resolved]

NARRATIVE: CASE EVENT DATE: 20180726
